FAERS Safety Report 4895301-7 (Version None)
Quarter: 2005Q4

REPORT INFORMATION
  Report Type: 
  Country: None (occurrence: None)
  Receive Date: 20051221
  Receipt Date: 20051026
  Transmission Date: 20060501
  Serious: No
  Sender: FDA-Public Use
  Company Number: US-YAMANOUCHI-YPA20050561

PATIENT
  Age: 76 Year
  Sex: Female
  Weight: 90.7194 kg

DRUGS (2)
  1. VESICARE [Suspect]
     Indication: HYPERTONIC BLADDER
     Dosage: 5 MG QD PO
     Route: 048
     Dates: start: 20050101
  2. HYZAAR [Concomitant]

REACTIONS (1)
  - BLOOD PRESSURE INCREASED [None]
